FAERS Safety Report 15384057 (Version 1)
Quarter: 2018Q4

REPORT INFORMATION
  Report Type: Spontaneous
  Country: ES (occurrence: ES)
  Receive Date: 20180914
  Receipt Date: 20180914
  Transmission Date: 20190204
  Serious: Yes (Hospitalization)
  Sender: FDA-Public Use
  Company Number: ES-TEVA-2018-ES-954129

PATIENT
  Age: 32 Year
  Sex: Female
  Weight: 53.5 kg

DRUGS (3)
  1. CLARITROMICINA 501 0 MG 21 COMPRIMIDOS [Suspect]
     Active Substance: CLARITHROMYCIN
     Indication: ABDOMINAL PAIN UPPER
     Route: 048
     Dates: start: 20180713, end: 20180724
  2. OMEPRAZOL (2141A) [Suspect]
     Active Substance: OMEPRAZOLE
     Route: 065
     Dates: start: 20180713, end: 20180724
  3. AMOXICILINA (108A) [Suspect]
     Active Substance: AMOXICILLIN
     Indication: ABDOMINAL PAIN UPPER
     Route: 048
     Dates: start: 20180713, end: 20180724

REACTIONS (1)
  - Toxic skin eruption [Recovered/Resolved]

NARRATIVE: CASE EVENT DATE: 20180722
